FAERS Safety Report 6876828-5 (Version None)
Quarter: 2010Q2

REPORT INFORMATION
  Report Type: 
  Country: None (occurrence: None)
  Receive Date: 20100616
  Receipt Date: 20100528
  Transmission Date: 20101027
  Serious: No
  Sender: FDA-Public Use
  Company Number: DSA_43082_2010

PATIENT
  Sex: Female

DRUGS (2)
  1. XENAZINE [Suspect]
     Indication: HUNTINGTON'S CHOREA
     Dosage: 12.5 MG BID ORAL, (37.5 MG, (DOSE: 25 MG MORNING, 12.5 MG EVENING) ORAL)
     Route: 048
     Dates: start: 20091113, end: 20100228
  2. XENAZINE [Suspect]
     Indication: HUNTINGTON'S CHOREA
     Dosage: 12.5 MG BID ORAL, (37.5 MG, (DOSE: 25 MG MORNING, 12.5 MG EVENING) ORAL)
     Route: 048
     Dates: start: 20100301, end: 20100520

REACTIONS (1)
  - NAUSEA [None]
